APPROVED DRUG PRODUCT: BRONCHO SALINE
Active Ingredient: SODIUM CHLORIDE
Strength: 0.9%
Dosage Form/Route: AEROSOL, METERED;INHALATION
Application: N019912 | Product #001
Applicant: BLAIREX LABORATORIES INC
Approved: Sep 3, 1992 | RLD: Yes | RS: No | Type: DISCN